FAERS Safety Report 22966787 (Version 4)
Quarter: 2023Q4

REPORT INFORMATION
  Report Type: Spontaneous
  Country: US (occurrence: US)
  Receive Date: 20230921
  Receipt Date: 20231018
  Transmission Date: 20240110
  Serious: Yes (Other)
  Sender: FDA-Public Use
  Company Number: US-PFIZER INC-202300304275

PATIENT
  Age: 27 Year
  Sex: Female

DRUGS (2)
  1. XELJANZ [Suspect]
     Active Substance: TOFACITINIB CITRATE
     Dosage: 10 MG, 2X/DAY (10 MG TABLET 1 TABLET 2 TIMES A DAY)
     Route: 048
  2. XELJANZ [Suspect]
     Active Substance: TOFACITINIB CITRATE
     Dosage: 10 MG, 2X/DAY (5 MG TABLET 2 TABS IN THE MORNING AND 2 TABS IN THE EVENING)
     Route: 048

REACTIONS (4)
  - Drug reaction with eosinophilia and systemic symptoms [Unknown]
  - Cardiac disorder [Unknown]
  - Illness [Unknown]
  - Malaise [Unknown]
